FAERS Safety Report 25551133 (Version 1)
Quarter: 2025Q3

REPORT INFORMATION
  Report Type: Spontaneous
  Country: EU (occurrence: EU)
  Receive Date: 20250714
  Receipt Date: 20250714
  Transmission Date: 20251021
  Serious: Yes (Death, Life-Threatening, Other)
  Sender: SANDOZ
  Company Number: EU-AMGEN-BGRSP2025090814

PATIENT
  Age: 72 Year

DRUGS (4)
  1. CYCLOPHOSPHAMIDE [Suspect]
     Active Substance: CYCLOPHOSPHAMIDE
     Indication: Plasma cell myeloma refractory
     Route: 065
     Dates: start: 20241004
  2. DECADRON (DEXAMETHASONE SODIUM PHOSPHATE) [Suspect]
     Active Substance: DEXAMETHASONE SODIUM PHOSPHATE
     Indication: Plasma cell myeloma refractory
     Route: 065
     Dates: start: 20241004
  3. KYPROLIS [Suspect]
     Active Substance: CARFILZOMIB
     Dosage: 100 MILLIGRAM, QWK, D8, D9, D15, D16
     Route: 042
     Dates: start: 20241004
  4. KYPROLIS [Suspect]
     Active Substance: CARFILZOMIB
     Indication: Plasma cell myeloma refractory
     Dosage: 30 MILLIGRAM, QWK, D1, D2
     Route: 042
     Dates: start: 20241004

REACTIONS (6)
  - Septic shock [Fatal]
  - Respiratory failure [Fatal]
  - Renal failure [Fatal]
  - Anuria [Fatal]
  - Cardiac failure [Fatal]
  - Pleural effusion [Unknown]
